FAERS Safety Report 6284696-8 (Version None)
Quarter: 2009Q3

REPORT INFORMATION
  Report Type: 
  Country: None (occurrence: None)
  Receive Date: 20090727
  Receipt Date: 20090507
  Transmission Date: 20100115
  Serious: No
  Sender: FDA-Public Use
  Company Number: US-BAYER-200920848NA

PATIENT
  Sex: Female

DRUGS (1)
  1. OCELLA [Suspect]
     Indication: CONTRACEPTION
     Route: 048

REACTIONS (6)
  - ABDOMINAL DISTENSION [None]
  - BREAST SWELLING [None]
  - BREAST TENDERNESS [None]
  - DEPRESSION [None]
  - MIGRAINE [None]
  - PELVIC PAIN [None]
